FAERS Safety Report 14180410 (Version 1)
Quarter: 2017Q4

REPORT INFORMATION
  Report Type: Spontaneous
  Country: US (occurrence: US)
  Receive Date: 20171110
  Receipt Date: 20171110
  Transmission Date: 20180321
  Serious: Yes (Death)
  Sender: FDA-Public Use
  Company Number: PHHY2017US165449

PATIENT
  Age: 21 Year
  Sex: Female

DRUGS (1)
  1. FILGRASTIM [Suspect]
     Active Substance: FILGRASTIM
     Indication: IDIOPATHIC NEUTROPENIA
     Dosage: 3.5 MG/KG, QD
     Route: 065

REACTIONS (4)
  - Sepsis [Fatal]
  - Pneumonia [Fatal]
  - Lymphoproliferative disorder [Fatal]
  - Staphylococcal infection [Fatal]
